FAERS Safety Report 21048993 (Version 3)
Quarter: 2023Q1

REPORT INFORMATION
  Report Type: Spontaneous
  Country: JP (occurrence: JP)
  Receive Date: 20220706
  Receipt Date: 20230127
  Transmission Date: 20230417
  Serious: Yes (Life-Threatening, Hospitalization, Other)
  Sender: FDA-Public Use
  Company Number: JP-Eisai-202203488_LEN-EC_P_1

PATIENT
  Age: 51 Year
  Sex: Female
  Weight: 60 kg

DRUGS (9)
  1. LENVIMA [Suspect]
     Active Substance: LENVATINIB
     Indication: Endometrial cancer
     Route: 048
     Dates: start: 20220607, end: 20220615
  2. LENVIMA [Suspect]
     Active Substance: LENVATINIB
     Route: 048
     Dates: start: 20220621, end: 20220621
  3. KEYTRUDA [Suspect]
     Active Substance: PEMBROLIZUMAB
     Indication: Endometrial cancer
     Route: 042
     Dates: start: 20220607, end: 20220607
  4. AMLODIPINE BESYLATE [Concomitant]
     Active Substance: AMLODIPINE BESYLATE
     Indication: Hypertension
     Dosage: DOSE AND FREQUENCY UNKNOWN
     Route: 065
  5. FUROSEMIDE [Concomitant]
     Active Substance: FUROSEMIDE
     Indication: Pulmonary oedema
     Route: 042
     Dates: start: 20220625, end: 20220628
  6. SOLU-CORTEF [Concomitant]
     Active Substance: HYDROCORTISONE SODIUM SUCCINATE
     Indication: Shock
     Route: 042
     Dates: start: 20220621, end: 20220624
  7. MEROPENEM [Concomitant]
     Active Substance: MEROPENEM
     Indication: Shock
     Route: 042
     Dates: start: 20220622, end: 20220628
  8. OMEPRAZOLE [Concomitant]
     Active Substance: OMEPRAZOLE
     Indication: Shock
     Route: 042
     Dates: start: 20220622, end: 20220628
  9. VASOPRESSIN [Concomitant]
     Active Substance: VASOPRESSIN
     Indication: Shock
     Dosage: DOSE AND FREQUENCY UNKNOWN
     Route: 065
     Dates: start: 20220622

REACTIONS (7)
  - Shock [Unknown]
  - Pulmonary oedema [Recovering/Resolving]
  - Disseminated intravascular coagulation [Recovered/Resolved]
  - Myocarditis [Recovered/Resolved]
  - Hypertension [Recovering/Resolving]
  - Hyperthyroidism [Recovering/Resolving]
  - Pyrexia [Recovering/Resolving]

NARRATIVE: CASE EVENT DATE: 20220608
